FAERS Safety Report 24380860 (Version 3)
Quarter: 2025Q2

REPORT INFORMATION
  Report Type: Spontaneous
  Country: GB (occurrence: GB)
  Receive Date: 20240930
  Receipt Date: 20250623
  Transmission Date: 20250717
  Serious: Yes (Hospitalization, Other)
  Sender: NOVO NORDISK
  Company Number: GB-NOVOPROD-1291557

PATIENT
  Age: 27 Year
  Sex: Female

DRUGS (1)
  1. OZEMPIC [Suspect]
     Active Substance: SEMAGLUTIDE
     Indication: Weight control

REACTIONS (10)
  - Seizure [Unknown]
  - Dehydration [Unknown]
  - Illness [Unknown]
  - Shock [Unknown]
  - Vomiting [Unknown]
  - Overdose [Unknown]
  - Weight decreased [Unknown]
  - Fatigue [Unknown]
  - Prescription drug used without a prescription [Unknown]
  - Product use in unapproved indication [Unknown]
